FAERS Safety Report 17065035 (Version 4)
Quarter: 2020Q2

REPORT INFORMATION
  Report Type: Spontaneous
  Country: US (occurrence: US)
  Receive Date: 20191122
  Receipt Date: 20200408
  Transmission Date: 20200713
  Serious: No
  Sender: FDA-Public Use
  Company Number: US-SA-2019SA158858

PATIENT
  Age: 89 Year
  Sex: Female

DRUGS (2)
  1. APIDRA [Suspect]
     Active Substance: INSULIN GLULISINE
     Dosage: 13 UNITS IN THE MORNING, 17 UNITS AT LUNCH, AND 12-13 AT NIGHT
     Route: 065
  2. APIDRA [Suspect]
     Active Substance: INSULIN GLULISINE
     Indication: TYPE 2 DIABETES MELLITUS
     Dosage: 40-41 UNITS, TID
     Route: 065

REACTIONS (1)
  - Blood glucose increased [Unknown]
